FAERS Safety Report 10369249 (Version 1)
Quarter: 2014Q1

REPORT INFORMATION
  Report Type: Spontaneous
  Country: US (occurrence: None)
  Receive Date: 20140306
  Receipt Date: 20140306
  Transmission Date: 20141002
  Serious: Yes (Other)
  Sender: FDA-Public Use
  Company Number: 163-21880-13090780

PATIENT
  Age: 62 Year
  Sex: Male

DRUGS (33)
  1. REVLIMID (LENALIDOMIDE) (5 MILLIGRAM, CAPSULES) [Suspect]
     Indication: CHRONIC LYMPHOCYTIC LEUKAEMIA
     Route: 048
     Dates: start: 201211, end: 2012
  2. ASPIRINE (ACETYLSALICYLIC ACID) [Concomitant]
  3. RITUXIMAB (RITUXIMAB) [Concomitant]
  4. INFLUENZA VACCINE (INFLUENZA VACCINE) [Concomitant]
  5. ACYCLOVIR (ACICLOVIR) [Concomitant]
  6. PEN VK (PHENOXYMETHYLPENICILLIN POTASSIUM) [Concomitant]
  7. PENTAMIDINE (PENTAMIDINE) (INHALANT) [Concomitant]
  8. METOPROLOL ER (METOPROLOL) [Concomitant]
  9. CENTRUM SILVER (CENTRUM SILVER) (TABLETS) [Concomitant]
  10. ATIVAN (LORAZEPAM) [Concomitant]
  11. AMBIEN (ZOLPIDEM TARTRATE) [Concomitant]
  12. IMMUNOGLOBULIN (IMMUNOGLOBULIN) [Concomitant]
  13. ALLOPURINOL (ALLOPURINOL) [Concomitant]
  14. ALBUTEROL (SALBUTAMOL) [Concomitant]
  15. AMOXICILLIN (AMOXICILLIN) [Concomitant]
  16. ATOVAQUONE (ATOVAQUONE) [Concomitant]
  17. COMPAZINE (PROCHLORPERAZINE EDISYLATE) [Concomitant]
  18. COUMADIN (WARFARIN SODIUM) [Concomitant]
  19. DESONIDE (DESONIDE) (CREAM) [Concomitant]
  20. FLUCONAZOLE (FLUCONAZOLE) [Concomitant]
  21. HYDROCHLOROTHIAZIDE (HYDROCHLOROTHIAZIDE) [Concomitant]
  22. IVERMECTIN (IVERMECTIN) [Concomitant]
  23. IVF [Concomitant]
  24. K-DUR (POTASSIUM CHLORIDE) [Concomitant]
  25. LEVAQUIN (LEVOFLOXACIN) [Concomitant]
  26. POSACONAZOLE (POSACONAZOLE) [Concomitant]
  27. LOVENOX (HEPARIN-FRACTION, SODIUM SALT) [Concomitant]
  28. MG + PROTEIN (MAGNESIUM) [Concomitant]
  29. MMF (MYCOPHENOLATE MOFETIL) [Concomitant]
  30. MUCINEX DM (TUSSIN DM) [Concomitant]
  31. OXYCODONE (OXYCODONE) [Concomitant]
  32. PRILOSEC (OMEPRAZOLE) [Concomitant]
  33. RITALIN [Concomitant]

REACTIONS (1)
  - Liver function test abnormal [None]
